FAERS Safety Report 13815601 (Version 1)
Quarter: 2017Q3

REPORT INFORMATION
  Report Type: Report from Study
  Country: None (occurrence: BR)
  Receive Date: 20170731
  Receipt Date: 20170731
  Transmission Date: 20171127
  Serious: Yes (Other)
  Sender: FDA-Public Use
  Company Number: BR-ABBVIE-17K-020-2054524-00

PATIENT
  Age: 65 Year
  Sex: Female

DRUGS (2)
  1. HUMIRA [Suspect]
     Active Substance: ADALIMUMAB
     Route: 058
     Dates: start: 2017
  2. HUMIRA [Suspect]
     Active Substance: ADALIMUMAB
     Indication: RHEUMATOID ARTHRITIS
     Route: 058
     Dates: start: 20140703, end: 2017

REACTIONS (6)
  - Joint effusion [Recovered/Resolved]
  - Clavicle fracture [Recovered/Resolved]
  - Joint effusion [Unknown]
  - Muscle rupture [Unknown]
  - Muscle necrosis [Unknown]
  - Accident [Unknown]

NARRATIVE: CASE EVENT DATE: 201705
